FAERS Safety Report 7807383-0 (Version None)
Quarter: 2011Q4

REPORT INFORMATION
  Report Type: 
  Country: None (occurrence: None)
  Receive Date: 20111011
  Receipt Date: 20110926
  Transmission Date: 20120403
  Serious: Yes (Other)
  Sender: FDA-Public Use
  Company Number: US-WATSON-2011-15546

PATIENT
  Age: 46 Year
  Sex: Female
  Weight: 63.492 kg

DRUGS (3)
  1. PREDNISONE [Suspect]
     Dosage: 60 MG DAILY
     Route: 048
     Dates: start: 20091101, end: 20100301
  2. PREDNISONE [Suspect]
     Dosage: 60 MG QOD
     Route: 048
     Dates: start: 20100301, end: 20100501
  3. PREDNISONE [Suspect]
     Indication: ENCEPHALITIS
     Dosage: 5MG / MONHT
     Route: 048
     Dates: start: 20100501, end: 20110501

REACTIONS (7)
  - OSTEONECROSIS [None]
  - FLUID RETENTION [None]
  - SUICIDAL IDEATION [None]
  - DIABETES MELLITUS [None]
  - HOT FLUSH [None]
  - WEIGHT INCREASED [None]
  - INSOMNIA [None]
